FAERS Safety Report 26099074 (Version 1)
Quarter: 2025Q4

REPORT INFORMATION
  Report Type: Spontaneous
  Country: US (occurrence: US)
  Receive Date: 20251128
  Receipt Date: 20251128
  Transmission Date: 20260117
  Serious: No
  Sender: ABBVIE
  Company Number: US-ABBVIE-6565620

PATIENT
  Sex: Female

DRUGS (4)
  1. BOTOX COSMETIC [Suspect]
     Active Substance: ONABOTULINUMTOXINA
     Indication: Skin wrinkling
     Dosage: TIME INTERVAL: AS NECESSARY: 28 UNITS
     Route: 065
     Dates: start: 202510, end: 202510
  2. BOTOX COSMETIC [Suspect]
     Active Substance: ONABOTULINUMTOXINA
     Indication: Skin wrinkling
     Dosage: TIME INTERVAL: AS NECESSARY: 28 UNITS
     Route: 065
     Dates: start: 202510, end: 202510
  3. BOTOX COSMETIC [Suspect]
     Active Substance: ONABOTULINUMTOXINA
     Indication: Skin wrinkling
     Dosage: TIME INTERVAL: AS NECESSARY: 28 UNITS
     Route: 065
     Dates: start: 202510, end: 202510
  4. BOTOX COSMETIC [Suspect]
     Active Substance: ONABOTULINUMTOXINA
     Indication: Skin wrinkling
     Dosage: TIME INTERVAL: AS NECESSARY: 28 UNITS
     Route: 065
     Dates: start: 202510, end: 202510

REACTIONS (9)
  - Upper respiratory tract infection [Unknown]
  - Muscular weakness [Unknown]
  - Vision blurred [Unknown]
  - Dizziness postural [Unknown]
  - Paranasal sinus hypersecretion [Unknown]
  - Malaise [Unknown]
  - Neuropathy peripheral [Unknown]
  - Viral infection [Unknown]
  - Dehydration [Unknown]

NARRATIVE: CASE EVENT DATE: 20250101
